FAERS Safety Report 25591159 (Version 1)
Quarter: 2025Q3

REPORT INFORMATION
  Report Type: Spontaneous
  Country: US (occurrence: US)
  Receive Date: 20250722
  Receipt Date: 20250722
  Transmission Date: 20251020
  Serious: Yes (Other)
  Sender: UNILEVER
  Company Number: US-Unilever-2180951

PATIENT
  Age: 85 Year
  Sex: Female

DRUGS (1)
  1. DOVE (ALUMINUM CHLOROHYDRATE) [Suspect]
     Active Substance: ALUMINUM CHLOROHYDRATE

REACTIONS (5)
  - Application site pruritus [Not Recovered/Not Resolved]
  - Product use issue [Not Recovered/Not Resolved]
  - Fungal infection [Not Recovered/Not Resolved]
  - Application site pain [Not Recovered/Not Resolved]
  - Application site pain [Not Recovered/Not Resolved]

NARRATIVE: CASE EVENT DATE: 20250604
